FAERS Safety Report 23272994 (Version 1)
Quarter: 2023Q4

REPORT INFORMATION
  Report Type: Report from Study
  Country: US (occurrence: US)
  Receive Date: 20231207
  Receipt Date: 20231207
  Transmission Date: 20240109
  Serious: Yes (Hospitalization)
  Sender: FDA-Public Use
  Company Number: US-Eisai Medical Research-EC-2023-147818

PATIENT
  Age: 75 Year
  Sex: Female

DRUGS (1)
  1. LENVIMA [Suspect]
     Active Substance: LENVATINIB
     Indication: Endometrial cancer
     Route: 048
     Dates: start: 20230824, end: 202309

REACTIONS (3)
  - Hypertension [Unknown]
  - Haemorrhoids [Unknown]
  - Dysphonia [Unknown]

NARRATIVE: CASE EVENT DATE: 20230801
